FAERS Safety Report 8364621-6 (Version None)
Quarter: 2012Q2

REPORT INFORMATION
  Report Type: 
  Country: None (occurrence: None)
  Receive Date: 20120516
  Receipt Date: 20120510
  Transmission Date: 20120825
  Serious: Yes (Death)
  Sender: FDA-Public Use
  Company Number: TH-JNJFOC-20120512004

PATIENT

DRUGS (17)
  1. PREDNISONE TAB [Suspect]
     Indication: ACUTE LYMPHOCYTIC LEUKAEMIA
     Dosage: DAYS 1-28
     Route: 065
  2. VINCRISTINE [Suspect]
     Dosage: ON DAYS 1, 8, 15, 22,
     Route: 065
  3. ELSPAR [Suspect]
     Indication: ACUTE LYMPHOCYTIC LEUKAEMIA
     Dosage: 10,000 U/M2 THRICE WEEKLY (IN REINDUCTION I), S/H: 25,000 U/M2 THRICE WEEKLY (IN REINDUCTION I),
     Route: 030
  4. CYCLOPHOSPHAMIDE [Suspect]
     Indication: ACUTE LYMPHOCYTIC LEUKAEMIA
     Dosage: ON DAY 26
     Route: 065
  5. DOXORUBICIN HCL [Suspect]
     Dosage: L: 25 MG/M2/DOSE, S/H: 25 MG/M2/DOSE, DAYS 1, 8
     Route: 042
  6. METHOTREXATE [Suspect]
     Dosage: AGE DEPENDENT DOSE ON DAYS 1
     Route: 037
  7. METHOTREXATE [Suspect]
     Dosage: HIGH DOSE L:2.5 G/M2, S/H: 5 G/M2 ON DAYS 1, 15, 29, 43, 57
     Route: 065
  8. VINCRISTINE [Suspect]
     Indication: ACUTE LYMPHOCYTIC LEUKAEMIA
     Dosage: ON DAYS 1, 8, 15
     Route: 065
  9. DOXORUBICIN HCL [Suspect]
     Indication: ACUTE LYMPHOCYTIC LEUKAEMIA
     Dosage: ON DAYS 1, 8
     Route: 042
  10. METHOTREXATE [Suspect]
     Indication: ACUTE LYMPHOCYTIC LEUKAEMIA
     Dosage: AGE DEPENDENT DOSE ON DAYS 8, 15, 29
     Route: 037
  11. MERCAPTOPURINE [Suspect]
     Indication: ACUTE LYMPHOCYTIC LEUKAEMIA
     Dosage: DAYS 15-70
     Route: 065
  12. METHOTREXATE [Suspect]
     Dosage: DAYS 1, 15 (8, 22)
     Route: 037
  13. CYTARABINE [Suspect]
     Indication: ACUTE LYMPHOCYTIC LEUKAEMIA
     Dosage: DAYS 23-26, 29-32
     Route: 065
  14. MERCAPTOPURINE [Suspect]
     Dosage: DAYS 22-35
     Route: 065
  15. COTRIM [Concomitant]
     Indication: ANTIFUNGAL PROPHYLAXIS
     Dosage: FOR 3 CONSECUTIVE D/WK FROM D 15 OF REMISSION INDUCTION TO 12 WKS AFTER COMPL. OF ALL CHEMOTHERAPY
     Route: 065
  16. ELSPAR [Suspect]
     Dosage: 10,000 U/M2 ON 2,4,6,8,10,12, EXTRA ON 15, 17, 19 IF 5% RESIDUAL LEUKEMIA CELLS IN BONE MARROW ON 15
     Route: 030
  17. DEXAMETHASONE [Suspect]
     Indication: ACUTE LYMPHOCYTIC LEUKAEMIA
     Dosage: L: 8 MG/M2/DAY, 5 DAYS: S/H: 12 MG/M2/DAY, 5 DAYS EVER 4 WEEKS
     Route: 065

REACTIONS (2)
  - OFF LABEL USE [None]
  - BACTERIAL INFECTION [None]
